FAERS Safety Report 14535569 (Version 1)
Quarter: 2018Q1

REPORT INFORMATION
  Report Type: Spontaneous
  Country: DE (occurrence: DE)
  Receive Date: 20180215
  Receipt Date: 20180215
  Transmission Date: 20180509
  Serious: Yes (Other)
  Sender: FDA-Public Use
  Company Number: DE-PFIZER INC-2018062803

PATIENT
  Age: 71 Year
  Sex: Male

DRUGS (1)
  1. SUTENT [Suspect]
     Active Substance: SUNITINIB MALATE
     Indication: ENDOCRINE PANCREATIC DISORDER
     Dosage: 37.5 MG, CYCLIC, 4/2 SCHEDULE
     Dates: start: 2017

REACTIONS (1)
  - Lenticular opacities [Unknown]
